FAERS Safety Report 8843541 (Version 1)
Quarter: 2012Q4

REPORT INFORMATION
  Report Type: Report from Study
  Country: IT (occurrence: IT)
  Receive Date: 20121016
  Receipt Date: 20121016
  Transmission Date: 20130627
  Serious: Yes (Death, Hospitalization)
  Sender: FDA-Public Use
  Company Number: IT-BAXTER-2012BAX019734

PATIENT
  Age: 59 Year
  Sex: Male
  Weight: 58 kg

DRUGS (10)
  1. ENDOXAN BAXTER [Suspect]
     Indication: DIFFUSE LARGE B-CELL LYMPHOMA
     Route: 042
     Dates: start: 20120126
  2. ENDOXAN BAXTER [Suspect]
     Route: 042
     Dates: start: 20120330
  3. RITUXIMAB [Suspect]
     Indication: DIFFUSE LARGE B-CELL LYMPHOMA
     Route: 042
     Dates: start: 20120126
  4. RITUXIMAB [Suspect]
     Dosage: 301.5 ML
     Route: 042
     Dates: start: 20120330
  5. DOXORUBICIN [Suspect]
     Indication: DIFFUSE LARGE B-CELL LYMPHOMA
     Route: 042
     Dates: start: 20120126
  6. DOXORUBICIN [Suspect]
     Route: 042
     Dates: start: 20120330
  7. VINCRISTINE [Suspect]
     Indication: DIFFUSE LARGE B-CELL LYMPHOMA
     Route: 040
     Dates: start: 20120126
  8. VINCRISTINE [Suspect]
     Route: 040
     Dates: start: 20120330
  9. PREDNISONE [Suspect]
     Indication: DIFFUSE LARGE B-CELL LYMPHOMA
     Route: 048
     Dates: start: 20120126
  10. PREDNISONE [Suspect]
     Route: 048
     Dates: start: 20120403

REACTIONS (1)
  - Dysarthria [Fatal]
